FAERS Safety Report 10252258 (Version 3)
Quarter: 2014Q3

REPORT INFORMATION
  Report Type: Spontaneous
  Country: IT (occurrence: None)
  Receive Date: 20140619
  Receipt Date: 20140715
  Transmission Date: 20150326
  Serious: Yes (Life-Threatening, Hospitalization)
  Sender: FDA-Public Use
  Company Number: AUR-APL-2014-06466

PATIENT
  Age: 77 Year
  Sex: Female

DRUGS (1)
  1. METFORMIN (METFORMIN) UNKNOWN, UNKNOWN [Suspect]
     Active Substance: METFORMIN HYDROCHLORIDE
     Indication: PRODUCT USED FOR UNKNOWN INDICATION
     Dosage: 2000 MG, DAILY, ORAL
     Route: 048

REACTIONS (4)
  - Acute coronary syndrome [None]
  - Haemodialysis [None]
  - Acidosis [None]
  - Renal failure acute [None]

NARRATIVE: CASE EVENT DATE: 20140606
